FAERS Safety Report 21859773 (Version 1)
Quarter: 2023Q1

REPORT INFORMATION
  Report Type: Spontaneous
  Country: CA (occurrence: CA)
  Receive Date: 20230113
  Receipt Date: 20230113
  Transmission Date: 20230418
  Serious: Yes (Hospitalization)
  Sender: FDA-Public Use
  Company Number: CA-VIIV HEALTHCARE LIMITED-CA2023000716

PATIENT
  Age: 43 Year
  Sex: Female

DRUGS (2)
  1. RILPIVIRINE [Suspect]
     Active Substance: RILPIVIRINE
     Indication: HIV infection
     Dosage: UNK UNK, Z, 3ML, (600 MG) CABOTEGRAVIR AND (900 MG) RILPIVIRINE EVERY 2 MONTHS
     Route: 065
     Dates: start: 20220926
  2. CABOTEGRAVIR [Suspect]
     Active Substance: CABOTEGRAVIR
     Indication: HIV infection
     Dosage: UNK UNK, Z, 3ML, (600 MG) CABOTEGRAVIR AND (900 MG) RILPIVIRINE EVERY 2 MONTHS
     Route: 065

REACTIONS (1)
  - Limb discomfort [Unknown]
